FAERS Safety Report 21112886 (Version 1)
Quarter: 2022Q3

REPORT INFORMATION
  Report Type: Spontaneous
  Country: US (occurrence: None)
  Receive Date: 20220721
  Receipt Date: 20220721
  Transmission Date: 20221027
  Serious: Yes (Death, Other)
  Sender: FDA-Public Use
  Company Number: None

PATIENT
  Age: 68 Year
  Sex: Male
  Weight: 149 kg

DRUGS (1)
  1. REMDESIVIR [Suspect]
     Active Substance: REMDESIVIR
     Indication: COVID-19 pneumonia
     Dates: start: 20201207, end: 20201210

REACTIONS (4)
  - Acute kidney injury [None]
  - Haemodialysis [None]
  - Hypotension [None]
  - Atrial fibrillation [None]

NARRATIVE: CASE EVENT DATE: 20201210
